FAERS Safety Report 18349935 (Version 1)
Quarter: 2020Q4

REPORT INFORMATION
  Report Type: Spontaneous
  Country: CA (occurrence: CA)
  Receive Date: 20201006
  Receipt Date: 20201006
  Transmission Date: 20210114
  Serious: Yes (Other)
  Sender: FDA-Public Use
  Company Number: CA-JNJFOC-20200947934

PATIENT
  Age: 67 Year
  Sex: Female
  Weight: 103 kg

DRUGS (1)
  1. REMICADE [Suspect]
     Active Substance: INFLIXIMAB
     Indication: RHEUMATOID ARTHRITIS
     Route: 042

REACTIONS (5)
  - Product use issue [Unknown]
  - Lower respiratory tract infection [Unknown]
  - Off label use [Unknown]
  - Bladder disorder [Unknown]
  - Sinusitis [Unknown]
